FAERS Safety Report 7402040-7 (Version None)
Quarter: 2011Q1

REPORT INFORMATION
  Report Type: 
  Country: None (occurrence: None)
  Receive Date: 20110330
  Receipt Date: 20110318
  Transmission Date: 20110831
  Serious: Yes (Hospitalization)
  Sender: FDA-Public Use
  Company Number: 2011AP000494

PATIENT
  Age: 50 Year
  Sex: Female

DRUGS (4)
  1. REBOXETINE (REBOXETINE) [Concomitant]
  2. CLOZARIL [Suspect]
     Indication: SCHIZOPHRENIA
     Dosage: 50 MG;  PO; AM,  300 MG;PM;  PO
     Route: 048
  3. CLARITHROMYCIN [Suspect]
     Indication: LOWER RESPIRATORY TRACT INFECTION
     Dosage: 500 MG;BID
     Dates: end: 20110113
  4. AMISULPRIDE (AMISULPRIDE) [Concomitant]

REACTIONS (6)
  - BLOOD PRESSURE INCREASED [None]
  - DRUG INTERACTION [None]
  - OXYGEN SATURATION DECREASED [None]
  - DYSPNOEA [None]
  - HEART RATE INCREASED [None]
  - CONFUSIONAL STATE [None]
